FAERS Safety Report 16876941 (Version 1)
Quarter: 2019Q4

REPORT INFORMATION
  Report Type: Report from Study
  Country: EG (occurrence: EG)
  Receive Date: 20191002
  Receipt Date: 20191002
  Transmission Date: 20200122
  Serious: Yes (Other)
  Sender: FDA-Public Use
  Company Number: PHHY2019EG225534

PATIENT
  Age: 65 Year
  Sex: Female

DRUGS (3)
  1. INSULIN MIXTARD [Concomitant]
     Active Substance: INSULIN HUMAN
     Indication: DIABETES MELLITUS
     Dosage: 100 MG, BID
     Route: 065
  2. AFINITOR [Suspect]
     Active Substance: EVEROLIMUS
     Indication: BREAST CANCER
     Dosage: 5 MG, QD
     Route: 048
     Dates: start: 20190304
  3. AFINITOR [Suspect]
     Active Substance: EVEROLIMUS
     Indication: METASTASES TO BONE

REACTIONS (7)
  - Inflammation [Recovering/Resolving]
  - Abdominal pain upper [Recovering/Resolving]
  - Carbohydrate antigen 15-3 increased [Recovering/Resolving]
  - Decreased activity [Recovering/Resolving]
  - Fatigue [Recovering/Resolving]
  - Dysstasia [Recovering/Resolving]
  - Drug ineffective [Not Recovered/Not Resolved]

NARRATIVE: CASE EVENT DATE: 201904
